FAERS Safety Report 9890364 (Version 1)
Quarter: 2014Q1

REPORT INFORMATION
  Report Type: Spontaneous
  Country: FR (occurrence: FR)
  Receive Date: 20140212
  Receipt Date: 20140212
  Transmission Date: 20141002
  Serious: Yes (Other)
  Sender: FDA-Public Use
  Company Number: FR-ASTRAZENECA-2014SE08770

PATIENT
  Sex: Female

DRUGS (3)
  1. CRESTOR [Suspect]
     Indication: HYPERCHOLESTEROLAEMIA
     Route: 048
     Dates: start: 2013, end: 201401
  2. ANTI-HYPERTENSIVE TREATMENT [Concomitant]
  3. OTHERS [Concomitant]

REACTIONS (2)
  - Haematoma [Not Recovered/Not Resolved]
  - Muscle haemorrhage [Not Recovered/Not Resolved]
